FAERS Safety Report 20685832 (Version 1)
Quarter: 2022Q2

REPORT INFORMATION
  Report Type: Spontaneous
  Country: FR (occurrence: FR)
  Receive Date: 20220407
  Receipt Date: 20220407
  Transmission Date: 20220721
  Serious: Yes (Other)
  Sender: FDA-Public Use
  Company Number: FR-TEVA-2022-FR-2023487

PATIENT
  Sex: Male

DRUGS (1)
  1. SOTALOL HYDROCHLORIDE [Suspect]
     Active Substance: SOTALOL HYDROCHLORIDE
     Indication: Product used for unknown indication
     Dosage: 320 MILLIGRAM DAILY; IN THE MORNING AND IN THE EVENING
     Route: 065

REACTIONS (2)
  - Cardiac fibrillation [Not Recovered/Not Resolved]
  - Therapeutic product effect incomplete [Unknown]
